FAERS Safety Report 7877452-8 (Version None)
Quarter: 2011Q4

REPORT INFORMATION
  Report Type: 
  Country: None (occurrence: None)
  Receive Date: 20111031
  Receipt Date: 20111026
  Transmission Date: 20120403
  Serious: Yes (Hospitalization)
  Sender: FDA-Public Use
  Company Number: FR-PFIZER INC-2011260373

PATIENT
  Age: 74 Year
  Sex: Female

DRUGS (4)
  1. CLOPIXOL - SLOW RELEASE [Suspect]
     Indication: PSYCHOTIC DISORDER
     Dosage: 1 DF, EVERY 15 DAYS
     Route: 030
  2. ATHYMIL [Suspect]
     Indication: DEPRESSION
     Dosage: 60 MG, 1X/DAY
     Route: 048
  3. NOCTAMID [Suspect]
     Indication: INSOMNIA
     Dosage: 2 MG, 1X/DAY
     Route: 048
  4. XANAX [Suspect]
     Indication: ANXIETY
     Dosage: 1 MG, 1X/DAY
     Route: 048
     Dates: end: 20110817

REACTIONS (2)
  - FALL [None]
  - EXCORIATION [None]
